FAERS Safety Report 17552935 (Version 2)
Quarter: 2020Q2

REPORT INFORMATION
  Report Type: Report from Study
  Country: None (occurrence: US)
  Receive Date: 20200318
  Receipt Date: 20200410
  Transmission Date: 20200713
  Serious: Yes (Death, Other)
  Sender: FDA-Public Use
  Company Number: US-ABBVIE-20K-163-3324595-00

PATIENT
  Sex: Male

DRUGS (3)
  1. VENCLEXTA [Suspect]
     Active Substance: VENETOCLAX
     Indication: WHITE BLOOD CELL COUNT DECREASED
  2. VENCLEXTA [Suspect]
     Active Substance: VENETOCLAX
     Indication: MYELODYSPLASTIC SYNDROME
     Route: 048
     Dates: start: 201908
  3. VENCLEXTA [Suspect]
     Active Substance: VENETOCLAX
     Indication: HAEMORRHAGE

REACTIONS (3)
  - Pneumonia [Fatal]
  - Fall [Fatal]
  - Off label use [Unknown]
